FAERS Safety Report 8222996-2 (Version None)
Quarter: 2012Q1

REPORT INFORMATION
  Report Type: 
  Country: None (occurrence: None)
  Receive Date: 20120320
  Receipt Date: 20120314
  Transmission Date: 20120608
  Serious: Yes (Other)
  Sender: FDA-Public Use
  Company Number: US-AMGEN-USASP2010008787

PATIENT
  Age: 83 Year
  Sex: Female

DRUGS (4)
  1. ARANESP [Suspect]
     Indication: ANAEMIA
     Dosage: UNK
     Route: 058
     Dates: start: 20100819
  2. VITAMINS                           /00067501/ [Concomitant]
     Dosage: UNK
  3. PLAQUENIL [Concomitant]
     Dosage: UNK
  4. REMICADE [Concomitant]
     Dosage: UNK UNK, QD

REACTIONS (6)
  - HYPERSENSITIVITY [None]
  - RASH GENERALISED [None]
  - ANAEMIA [None]
  - AGITATION [None]
  - PRURITUS [None]
  - BLOOD SMEAR TEST ABNORMAL [None]
